FAERS Safety Report 8472128-0 (Version None)
Quarter: 2012Q2

REPORT INFORMATION
  Report Type: 
  Country: None (occurrence: None)
  Receive Date: 20120627
  Receipt Date: 20120621
  Transmission Date: 20120825
  Serious: Yes (Death, Other)
  Sender: FDA-Public Use
  Company Number: US-BRISTOL-MYERS SQUIBB COMPANY-14637151

PATIENT
  Age: 66 Year
  Sex: Female

DRUGS (7)
  1. TYLENOL W/ CODEINE NO. 3 [Concomitant]
     Dosage: 1DF=300MG/30MG
     Dates: start: 20090520
  2. MICRO-K [Concomitant]
     Route: 048
     Dates: start: 20090520
  3. IPILIMUMAB [Suspect]
     Indication: MALIGNANT MELANOMA
     Route: 042
     Dates: start: 20080620, end: 20090529
  4. CODEINE [Concomitant]
     Dosage: 1DF=300MG/30MG
  5. HYDROCORTISONE ACETATE [Concomitant]
     Route: 048
     Dates: start: 20090520
  6. PROTONIX [Concomitant]
     Route: 048
     Dates: start: 20090520
  7. LEVOTHYROXINE [Concomitant]
     Route: 048
     Dates: start: 20090520

REACTIONS (2)
  - KERATITIS [None]
  - NEOPLASM MALIGNANT [None]
